FAERS Safety Report 22255093 (Version 1)
Quarter: 2023Q2

REPORT INFORMATION
  Report Type: Spontaneous
  Country: CN (occurrence: CN)
  Receive Date: 20230426
  Receipt Date: 20230426
  Transmission Date: 20230722
  Serious: Yes (Hospitalization, Other)
  Sender: FDA-Public Use
  Company Number: CN-HALEON-CNCH2023APC017926

PATIENT

DRUGS (3)
  1. IBUPROFEN [Suspect]
     Active Substance: IBUPROFEN
     Indication: Nasopharyngitis
     Dosage: 1 DF, BID
     Route: 048
     Dates: start: 20230330, end: 20230401
  2. CEFDINIR [Suspect]
     Active Substance: CEFDINIR
     Indication: Nasopharyngitis
     Dosage: 1 DF, TID
     Route: 048
     Dates: start: 20230330, end: 20230401
  3. OSELTAMIVIR PHOSPHATE [Suspect]
     Active Substance: OSELTAMIVIR PHOSPHATE
     Indication: Nasopharyngitis
     Dosage: 75 MG, BID
     Route: 048
     Dates: start: 20230330, end: 20230401

REACTIONS (9)
  - Hepatic failure [Recovered/Resolved]
  - Liver injury [Recovered/Resolved]
  - Drug-induced liver injury [Recovered/Resolved]
  - Nausea [Recovered/Resolved]
  - Vomiting [Recovered/Resolved]
  - Asthenia [Recovered/Resolved]
  - Constipation [Recovered/Resolved]
  - Ill-defined disorder [Recovered/Resolved]
  - Product used for unknown indication [Unknown]

NARRATIVE: CASE EVENT DATE: 20230330
